FAERS Safety Report 8333186-7 (Version None)
Quarter: 2012Q1

REPORT INFORMATION
  Report Type: 
  Country: None (occurrence: None)
  Receive Date: 20120327
  Receipt Date: 20110315
  Transmission Date: 20120608
  Serious: Yes (Other)
  Sender: FDA-Public Use
  Company Number: PHHY2011US21185

PATIENT
  Age: 43 Year
  Sex: Male

DRUGS (7)
  1. SPIRONOLACTONE [Concomitant]
  2. DIGOXIN (DIIGOXIN) [Concomitant]
  3. GLEEVEC [Suspect]
     Indication: CHRONIC MYELOID LEUKAEMIA
     Dosage: 400 MG, QD, ORAL
     Route: 048
     Dates: end: 20100101
  4. LISINOPRIL [Concomitant]
  5. LASIX [Concomitant]
  6. PREDNISONE TAB [Concomitant]
  7. COREG [Concomitant]

REACTIONS (2)
  - HAEMATOCHEZIA [None]
  - PNEUMONIA PRIMARY ATYPICAL [None]
